FAERS Safety Report 17348731 (Version 1)
Quarter: 2020Q1

REPORT INFORMATION
  Report Type: Report from Study
  Country: US (occurrence: US)
  Receive Date: 20200129
  Receipt Date: 20200129
  Transmission Date: 20200409
  Serious: No
  Sender: FDA-Public Use
  Company Number: US-EXELIXIS-CABO-19024530

PATIENT
  Age: 59 Year
  Sex: Male

DRUGS (2)
  1. CABOMETYX [Suspect]
     Active Substance: CABOZANTINIB S-MALATE
     Indication: RENAL CANCER
     Dosage: 40 MG 3 TIMES A WEEK ALTERNATING WITH 20 MG 4 TIMES A WEEK
     Route: 048
     Dates: start: 201907
  2. CABOMETYX [Suspect]
     Active Substance: CABOZANTINIB S-MALATE
     Dosage: 40 MG 4 TIMES A WEEK ALTERNATING WITH 20 MG 3 TIMES A WEEK
     Route: 048
     Dates: start: 201910

REACTIONS (1)
  - Mass [Recovering/Resolving]

NARRATIVE: CASE EVENT DATE: 20190923
